FAERS Safety Report 6624057-2 (Version None)
Quarter: 2010Q1

REPORT INFORMATION
  Report Type: 
  Country: None (occurrence: None)
  Receive Date: 20100310
  Receipt Date: 20100225
  Transmission Date: 20100710
  Serious: Yes (Life-Threatening, Hospitalization, Other)
  Sender: FDA-Public Use
  Company Number: DE-ELI_LILLY_AND_COMPANY-DE201002007160

PATIENT
  Age: 28 Year
  Sex: Female
  Weight: 30 kg

DRUGS (6)
  1. ZYPREXA [Suspect]
     Dosage: 1 D/F, DAILY (1/D)
     Route: 048
     Dates: start: 20090601, end: 20091010
  2. FLUOXETIN 1A PHARMA [Concomitant]
     Dosage: 20 MG, DAILY (1/D)
     Route: 048
     Dates: start: 20080701, end: 20091009
  3. ATOSIL [Concomitant]
     Dosage: 25 MG, 3/D
     Route: 048
     Dates: start: 20080701, end: 20091009
  4. SEROQUEL [Concomitant]
     Dosage: 1 D/F, DAILY (1/D)
     Route: 048
     Dates: start: 20090101
  5. ARTELAC [Concomitant]
     Indication: DRY EYE
     Dosage: 3 D/F, 2/D
     Route: 047
     Dates: start: 20030101, end: 20091006
  6. DULCOLAX [Concomitant]
     Route: 048

REACTIONS (6)
  - BRADYCARDIA [None]
  - GENERAL PHYSICAL HEALTH DETERIORATION [None]
  - HYPOKALAEMIA [None]
  - LONG QT SYNDROME [None]
  - SINOATRIAL BLOCK [None]
  - WEIGHT DECREASED [None]
